FAERS Safety Report 4709021-2 (Version None)
Quarter: 2005Q3

REPORT INFORMATION
  Report Type: 
  Country: None (occurrence: None)
  Receive Date: 20050707
  Receipt Date: 20050420
  Transmission Date: 20060218
  Serious: Yes (Hospitalization)
  Sender: FDA-Public Use
  Company Number: GXBR2005US01104

PATIENT
  Age: 44 Year
  Sex: Female
  Weight: 49.4 kg

DRUGS (4)
  1. ALPRAZOLAM [Suspect]
     Indication: MUSCLE SPASMS
     Dosage: 0.5 MG TID ORAL
     Route: 048
     Dates: start: 20040501
  2. HYDROCODONE BITARTRATE + ACETAMINOPHEN [Suspect]
     Indication: ANALGESIC EFFECT
     Dosage: 10/500 MG, QID, ORAL
     Route: 048
     Dates: start: 20040501, end: 20050331
  3. ZYRTEC [Concomitant]
  4. METHOCARBAMOL [Concomitant]

REACTIONS (4)
  - BLOOD PRESSURE INCREASED [None]
  - CHEST PAIN [None]
  - DRUG WITHDRAWAL SYNDROME [None]
  - TREATMENT NONCOMPLIANCE [None]
